FAERS Safety Report 6679752-6 (Version None)
Quarter: 2010Q2

REPORT INFORMATION
  Report Type: 
  Country: None (occurrence: None)
  Receive Date: 20100413
  Receipt Date: 20100118
  Transmission Date: 20101027
  Serious: Yes (Other)
  Sender: FDA-Public Use
  Company Number: US-JNJFOC-20100206734

PATIENT
  Age: 54 Year
  Sex: Female
  Weight: 68.04 kg

DRUGS (4)
  1. EXTRA STRENGTH TYLENOL PM [Suspect]
     Indication: SLEEP DISORDER THERAPY
     Route: 048
  2. NEXIUM [Concomitant]
     Indication: GASTROOESOPHAGEAL REFLUX DISEASE
  3. SINGULAIR [Concomitant]
  4. UNKNOWN ALLERGY SHOTS [Concomitant]

REACTIONS (11)
  - ABDOMINAL PAIN UPPER [None]
  - BACK PAIN [None]
  - DEHYDRATION [None]
  - DIARRHOEA [None]
  - DYSPHONIA [None]
  - EATING DISORDER [None]
  - PRODUCT QUALITY ISSUE [None]
  - SPEECH DISORDER [None]
  - TINNITUS [None]
  - TREMOR [None]
  - VOMITING [None]
